FAERS Safety Report 7794719-2 (Version None)
Quarter: 2011Q4

REPORT INFORMATION
  Report Type: 
  Country: None (occurrence: None)
  Receive Date: 20111004
  Receipt Date: 20110922
  Transmission Date: 20120403
  Serious: Yes (Other)
  Sender: FDA-Public Use
  Company Number: US-BAYER-2011-028270

PATIENT
  Age: 54 Year
  Sex: Female

DRUGS (14)
  1. CLIMARA [Suspect]
     Dosage: UNK
     Route: 062
     Dates: start: 19970101, end: 20070101
  2. VITAMIN TAB [Concomitant]
  3. CENESTIN [Suspect]
     Dosage: UNK
     Route: 048
     Dates: start: 19970101, end: 20070101
  4. PROMETRIUM [Suspect]
     Dosage: UNK
     Dates: start: 19970101, end: 20070101
  5. ESTRADIOL TRANSDERMAL [Suspect]
     Dosage: UNK
     Route: 062
     Dates: start: 19970101, end: 20070101
  6. PREMARIN [Suspect]
     Dosage: UNK
     Route: 048
     Dates: start: 19970101, end: 20070101
  7. PREMPHASE (PREMARIN;CYCRIN 14/14) [Suspect]
     Dosage: UNK
     Dates: start: 19970101, end: 20070101
  8. AVELOX [Concomitant]
  9. LEVAQUIN [Concomitant]
  10. AYGESTIN [Suspect]
     Dosage: UNK
     Dates: start: 19970101, end: 20070101
  11. AYGESTIN [Suspect]
  12. ESTRACE [Suspect]
     Dosage: UNK
     Dates: start: 19970101, end: 20070101
  13. ESTRADIOL [Suspect]
     Dosage: UNK
     Route: 048
     Dates: start: 19970101, end: 20070101
  14. ZIAC [Concomitant]

REACTIONS (3)
  - NERVOUS SYSTEM DISORDER [None]
  - INJURY [None]
  - BREAST CANCER [None]
